FAERS Safety Report 9059516 (Version 1)
Quarter: 2013Q1

REPORT INFORMATION
  Report Type: Spontaneous
  Country: US (occurrence: None)
  Receive Date: 20130205
  Receipt Date: 20130205
  Transmission Date: 20140127
  Serious: Yes (Death)
  Sender: FDA-Public Use
  Company Number: None

PATIENT
  Age: 58 Year
  Sex: Male
  Weight: 65 kg

DRUGS (7)
  1. NEURONTIN [Suspect]
     Indication: BACK PAIN
     Dosage: START W/1 TABLET THEN 2 AT NIGHT 1, THEN 2 AT BEDTIME BY MOUTH (5 DAYS. THEN INCREASE DOSAGE?TAKEN FOR 5 DAYS BEFORE DEATH
  2. NEURONTIN [Suspect]
     Indication: NECK PAIN
     Dosage: START W/1 TABLET THEN 2 AT NIGHT 1, THEN 2 AT BEDTIME BY MOUTH (5 DAYS. THEN INCREASE DOSAGE?TAKEN FOR 5 DAYS BEFORE DEATH
  3. NEURONTIN [Suspect]
     Indication: SPINAL PAIN
     Dosage: START W/1 TABLET THEN 2 AT NIGHT 1, THEN 2 AT BEDTIME BY MOUTH (5 DAYS. THEN INCREASE DOSAGE?TAKEN FOR 5 DAYS BEFORE DEATH
  4. VICODIN [Suspect]
     Indication: BACK PAIN
     Dosage: 1 TABLET EVERY 6 HOURS BY MOUTH (AS NEEDED) ?THEN FOR 10 DAYS BEFORE DEATH
     Route: 048
  5. VICODIN [Suspect]
     Indication: NECK PAIN
     Dosage: 1 TABLET EVERY 6 HOURS BY MOUTH (AS NEEDED) ?THEN FOR 10 DAYS BEFORE DEATH
     Route: 048
  6. VICODIN [Suspect]
     Indication: SPINAL PAIN
     Dosage: 1 TABLET EVERY 6 HOURS BY MOUTH (AS NEEDED) ?THEN FOR 10 DAYS BEFORE DEATH
     Route: 048
  7. ADVIL (IBUPROFEN) [Concomitant]

REACTIONS (4)
  - Sudden death [None]
  - Completed suicide [None]
  - Asphyxia [None]
  - Akathisia [None]
